FAERS Safety Report 6638981-8 (Version None)
Quarter: 2010Q1

REPORT INFORMATION
  Report Type: 
  Country: None (occurrence: None)
  Receive Date: 20100317
  Receipt Date: 20100308
  Transmission Date: 20100710
  Serious: Yes (Hospitalization)
  Sender: FDA-Public Use
  Company Number: JP-ASTRAZENECA-2010SE11007

PATIENT
  Sex: Female

DRUGS (4)
  1. COKENZEN [Suspect]
     Indication: HYPERTENSION
     Route: 048
     Dates: start: 20070101
  2. BONIVA [Interacting]
     Indication: OSTEOPOROSIS
     Route: 048
     Dates: start: 20080101, end: 20091123
  3. FLUOROURACIL [Interacting]
     Indication: COLON CANCER
     Route: 065
     Dates: start: 20090101, end: 20091102
  4. ELOXATIN [Interacting]
     Indication: COLON CANCER
     Route: 065
     Dates: start: 20090101, end: 20091102

REACTIONS (4)
  - ANGIOEDEMA [None]
  - COLON CANCER [None]
  - DERMATOMYOSITIS [None]
  - DRUG INTERACTION [None]
